FAERS Safety Report 5877505-X (Version None)
Quarter: 2008Q3

REPORT INFORMATION
  Report Type: 
  Country: None (occurrence: None)
  Receive Date: 20080909
  Receipt Date: 20080821
  Transmission Date: 20090109
  Serious: Yes (Other)
  Sender: FDA-Public Use
  Company Number: SPI200800341

PATIENT
  Age: 54 Year
  Sex: Female
  Weight: 79.8 kg

DRUGS (14)
  1. AMITIZA [Suspect]
     Indication: CONSTIPATION
     Dosage: 24 MCG, BID ORAL;
     Route: 048
     Dates: start: 20080404, end: 20080414
  2. AMITIZA [Suspect]
     Indication: CONSTIPATION
     Dosage: 24 MCG, BID ORAL;
     Route: 048
     Dates: start: 20080101
  3. METFORMIN HCL [Concomitant]
  4. NEXIUM [Concomitant]
  5. TOPROL-XL [Concomitant]
  6. FOSAMAX [Concomitant]
  7. LIPITOR [Concomitant]
  8. ESTRACE [Concomitant]
  9. LISINOPRIL [Concomitant]
  10. LOTREL	/01289101/ (AMLODIPINE, BENAZEPRIL HYDROCHLORIDE) [Concomitant]
  11. PAXIL [Concomitant]
  12. AZOR (ALPRAZOLAM) [Concomitant]
  13. PERCOCET /00446701/ (OXYCODONE HYDROCHLORIDE, OXYCODONE TEREPHTHALATE, [Concomitant]
  14. CELEBREX [Concomitant]

REACTIONS (10)
  - ARTHRITIS [None]
  - EYE DISORDER [None]
  - HOLMES-ADIE PUPIL [None]
  - INTRACRANIAL ANEURYSM [None]
  - NO THERAPEUTIC RESPONSE [None]
  - OCULAR HYPERAEMIA [None]
  - PAIN [None]
  - PAIN IN EXTREMITY [None]
  - PUPIL FIXED [None]
  - SWELLING [None]
